FAERS Safety Report 7451232-X (Version None)
Quarter: 2011Q2

REPORT INFORMATION
  Report Type: 
  Country: None (occurrence: None)
  Receive Date: 20110502
  Receipt Date: 20110419
  Transmission Date: 20111010
  Serious: Yes (Other)
  Sender: FDA-Public Use
  Company Number: PHHY2010CA11122

PATIENT
  Sex: Female

DRUGS (2)
  1. SANDOSTATIN LAR [Suspect]
     Route: 030
  2. SANDOSTATIN LAR [Suspect]
     Indication: NEUROENDOCRINE CARCINOMA
     Dosage: 30 MG, EVERY 4 WEEKS
     Route: 030
     Dates: start: 20100420

REACTIONS (6)
  - BRONCHITIS [None]
  - JOINT SWELLING [None]
  - BLOOD GLUCOSE INCREASED [None]
  - RENAL CYST [None]
  - BACK PAIN [None]
  - NIGHT SWEATS [None]
